FAERS Safety Report 12378140 (Version 5)
Quarter: 2016Q3

REPORT INFORMATION
  Report Type: Report from Study
  Country: CN (occurrence: CN)
  Receive Date: 20160517
  Receipt Date: 20160708
  Transmission Date: 20161109
  Serious: Yes (Other)
  Sender: FDA-Public Use
  Company Number: CN-ASTRAZENECA-2016SE44517

PATIENT
  Age: 65 Year
  Sex: Male

DRUGS (8)
  1. HUMALOG [Concomitant]
     Active Substance: INSULIN LISPRO
     Dates: start: 2015
  2. BETALOC ZOK [Suspect]
     Active Substance: METOPROLOL SUCCINATE
     Route: 048
  3. AMLODIPINE [Concomitant]
     Active Substance: AMLODIPINE BESYLATE
     Dosage: 1 TAB TWO TIMES A DAY,FROM OVER 10 YEARS AGO UP TO NOW.
  4. BYETTA [Suspect]
     Active Substance: EXENATIDE
     Indication: DIABETES MELLITUS
     Route: 058
     Dates: start: 20151102
  5. BYETTA [Suspect]
     Active Substance: EXENATIDE
     Indication: DIABETES MELLITUS
     Route: 058
  6. HUMULIN NOS [Concomitant]
     Active Substance: INSULIN HUMAN
     Dosage: 10 UNITS RESPECTIVELY IN THE MORNING AND IN THE EVENING
  7. HUMULIN NOS [Concomitant]
     Active Substance: INSULIN HUMAN
     Dosage: GRADUALLY INCREASED TO 56 UNITS IN THE MORNING AND 48 UNITS IN THE EVENING
     Dates: end: 2015
  8. APROVEL [Concomitant]
     Active Substance: IRBESARTAN
     Dosage: 1 TAB,DAILY, FROM OVER 10 YEARS AGO UP TO NOW.

REACTIONS (5)
  - Unresponsive to stimuli [Recovered/Resolved]
  - Weight decreased [Recovered/Resolved]
  - Abdominal discomfort [Not Recovered/Not Resolved]
  - Weight increased [Unknown]
  - Somnolence [Not Recovered/Not Resolved]

NARRATIVE: CASE EVENT DATE: 20151102
